FAERS Safety Report 14847011 (Version 2)
Quarter: 2018Q2

REPORT INFORMATION
  Report Type: Spontaneous
  Country: US (occurrence: US)
  Receive Date: 20180504
  Receipt Date: 20180618
  Transmission Date: 20180711
  Serious: Yes (Death, Hospitalization, Other)
  Sender: FDA-Public Use
  Company Number: US-PURDUE PHARMA-USA-2018-0143451

PATIENT
  Sex: Female

DRUGS (2)
  1. DILAUDID [Suspect]
     Active Substance: HYDROMORPHONE HYDROCHLORIDE
     Indication: PAIN
     Route: 048
  2. ALCOHOL. [Suspect]
     Active Substance: ALCOHOL
     Indication: PRODUCT USED FOR UNKNOWN INDICATION
     Route: 048

REACTIONS (9)
  - Hepatic cirrhosis [Fatal]
  - Alcoholism [Unknown]
  - Consciousness fluctuating [Not Recovered/Not Resolved]
  - Eye disorder [Not Recovered/Not Resolved]
  - Overdose [Unknown]
  - Drug dependence [Not Recovered/Not Resolved]
  - Skin discolouration [Not Recovered/Not Resolved]
  - Jaundice [Not Recovered/Not Resolved]
  - Cachexia [Not Recovered/Not Resolved]

NARRATIVE: CASE EVENT DATE: 201707
